FAERS Safety Report 9470709 (Version 1)
Quarter: 2013Q3

REPORT INFORMATION
  Report Type: Spontaneous
  Country: US (occurrence: US)
  Receive Date: 20130822
  Receipt Date: 20130822
  Transmission Date: 20140515
  Serious: Yes (Other)
  Sender: FDA-Public Use
  Company Number: US-PFIZER INC-2013241844

PATIENT
  Age: 75 Year
  Sex: Female
  Weight: 136 kg

DRUGS (2)
  1. LYRICA [Suspect]
     Indication: PAIN
     Dosage: UNK, 1X/DAY
     Route: 048
     Dates: start: 2003
  2. LYRICA [Suspect]
     Dosage: UNK, 1X/DAY
     Route: 048

REACTIONS (4)
  - Depressed level of consciousness [Unknown]
  - Weight increased [Unknown]
  - Joint swelling [Unknown]
  - Pain in extremity [Unknown]
